FAERS Safety Report 18453969 (Version 1)
Quarter: 2020Q4

REPORT INFORMATION
  Report Type: Spontaneous
  Country: BE (occurrence: BE)
  Receive Date: 20201102
  Receipt Date: 20201102
  Transmission Date: 20210114
  Serious: Yes (Other)
  Sender: FDA-Public Use
  Company Number: NVSC2020BE287466

PATIENT
  Sex: Male

DRUGS (1)
  1. AMOXICILLINE 500 MG SANDOZ [Suspect]
     Active Substance: AMOXICILLIN
     Indication: PRODUCT USED FOR UNKNOWN INDICATION
     Dosage: UNK
     Route: 065

REACTIONS (6)
  - Rash [Unknown]
  - Paraesthesia [Unknown]
  - Dyspnoea [Unknown]
  - Syncope [Unknown]
  - Peripheral swelling [Unknown]
  - Swelling face [Unknown]
